FAERS Safety Report 13649025 (Version 1)
Quarter: 2017Q2

REPORT INFORMATION
  Report Type: Spontaneous
  Country: US (occurrence: US)
  Receive Date: 20170613
  Receipt Date: 20170613
  Transmission Date: 20170830
  Serious: Yes (Other)
  Sender: FDA-Public Use
  Company Number: US-TARO-2017TAR00460

PATIENT
  Sex: Female

DRUGS (1)
  1. AMIODARONE HCL TABLET 200 MG [Suspect]
     Active Substance: AMIODARONE HYDROCHLORIDE
     Indication: ATRIAL FIBRILLATION
     Dosage: UNK
     Route: 048
     Dates: start: 201010

REACTIONS (10)
  - Retinal disorder [Unknown]
  - Cough [Unknown]
  - Visual impairment [Unknown]
  - Intraocular lens implant [Unknown]
  - Vision blurred [Not Recovered/Not Resolved]
  - Vitreous detachment [Unknown]
  - Off label use [Unknown]
  - Corneal deposits [Unknown]
  - Fatigue [Unknown]
  - Asthenia [Unknown]

NARRATIVE: CASE EVENT DATE: 201602
